FAERS Safety Report 19929135 (Version 1)
Quarter: 2021Q4

REPORT INFORMATION
  Report Type: Spontaneous
  Country: IN (occurrence: IN)
  Receive Date: 20211007
  Receipt Date: 20211007
  Transmission Date: 20220303
  Serious: Yes (Death, Hospitalization, Other)
  Sender: FDA-Public Use
  Company Number: IN-AMNEAL PHARMACEUTICALS-2021-AMRX-04045

PATIENT
  Age: 1 Year
  Sex: Female
  Weight: 8 kg

DRUGS (8)
  1. ADRENACLICK [Suspect]
     Active Substance: EPINEPHRINE
     Indication: Procedural haemorrhage
     Dosage: 1.25 MICROGRAM/KILOGRAM,2 ML OF 1:200,000 DILUTED TO 8 ML, I.E., 1:800,000
  2. LIDOCAINE [Concomitant]
     Active Substance: LIDOCAINE
     Indication: Procedural haemorrhage
     Dosage: 40 MILLIGRAM
  3. THIOPENTAL [Concomitant]
     Active Substance: THIOPENTAL
     Indication: Induction of anaesthesia
     Route: 065
  4. ATRACURIUM [Concomitant]
     Active Substance: ATRACURIUM
     Indication: Induction of anaesthesia
     Route: 065
  5. FENTANYL [Concomitant]
     Active Substance: FENTANYL
     Indication: Induction of anaesthesia
     Route: 065
  6. FENTANYL [Concomitant]
     Active Substance: FENTANYL
     Dosage: 15 MICROGRAM
     Route: 065
  7. SEVOFLURANE [Concomitant]
     Active Substance: SEVOFLURANE
     Indication: Maintenance of anaesthesia
     Route: 065
  8. PROPOFOL [Concomitant]
     Active Substance: PROPOFOL
     Indication: Maintenance of anaesthesia
     Route: 065

REACTIONS (5)
  - Subarachnoid haemorrhage [Fatal]
  - Brain herniation [Fatal]
  - Cardiac failure acute [Fatal]
  - Intracranial pressure increased [Fatal]
  - Pulmonary oedema [Recovered/Resolved]
